FAERS Safety Report 11869319 (Version 13)
Quarter: 2016Q4

REPORT INFORMATION
  Report Type: Report from Study
  Country: CA (occurrence: CA)
  Receive Date: 20151226
  Receipt Date: 20161028
  Transmission Date: 20170206
  Serious: Yes (Hospitalization, Other)
  Sender: FDA-Public Use
  Company Number: CA-BRISTOL-MYERS SQUIBB COMPANY-BMS-2015-088405

PATIENT
  Age: 42 Year
  Sex: Female

DRUGS (2)
  1. ABATACEPT [Suspect]
     Active Substance: ABATACEPT
     Indication: RHEUMATOID ARTHRITIS
     Dosage: 750 MG, Q3WK
     Route: 042
     Dates: start: 20150814
  2. ABATACEPT [Suspect]
     Active Substance: ABATACEPT
     Indication: PRODUCT USED FOR UNKNOWN INDICATION
     Dosage: 750 MG, Q3WK
     Route: 042
     Dates: start: 20150814

REACTIONS (16)
  - Post procedural infection [Unknown]
  - Fatigue [Unknown]
  - Transient ischaemic attack [Unknown]
  - Pharyngeal abscess [Unknown]
  - Arthritis infective [Not Recovered/Not Resolved]
  - Infection [Unknown]
  - Cellulitis [Unknown]
  - Hypotension [Unknown]
  - Rheumatoid arthritis [Unknown]
  - Tendonitis [Unknown]
  - Umbilical hernia [Unknown]
  - Carpal tunnel syndrome [Unknown]
  - Sinusitis [Unknown]
  - Pain [Unknown]
  - Carpal tunnel decompression [Unknown]
  - Mouth ulceration [Unknown]

NARRATIVE: CASE EVENT DATE: 20151203
